FAERS Safety Report 4463026-8 (Version None)
Quarter: 2004Q3

REPORT INFORMATION
  Report Type: 
  Country: None (occurrence: None)
  Receive Date: 20040928
  Receipt Date: 20040915
  Transmission Date: 20050211
  Serious: Yes (Hospitalization)
  Sender: FDA-Public Use
  Company Number: 2004067043

PATIENT
  Age: 85 Year
  Sex: Female

DRUGS (13)
  1. AMLODIPINE [Suspect]
     Indication: ILL-DEFINED DISORDER
     Dosage: 5 MG (5 MG, 1 IN 1 D), ORAL
     Route: 048
     Dates: start: 20040731
  2. LOPERAMIDE HCL [Suspect]
     Indication: ILL-DEFINED DISORDER
     Dosage: ORAL
     Route: 048
     Dates: start: 20040729
  3. BLOPRESS PLUS (CANDESARTAN CILEXETIL, HYDROCHLOROTHIAZIDE) [Suspect]
     Indication: ILL-DEFINED DISORDER
     Dosage: 8 MG (8 MG, 1 IN 1 D), ORAL
     Route: 048
     Dates: start: 20040729, end: 20040802
  4. TETRAZEPAM (TETRAZEPAM) [Suspect]
     Indication: ILL-DEFINED DISORDER
     Dosage: 50 MG (50 MG, 1 IN 1 D), ORAL
     Route: 048
     Dates: start: 20040731
  5. PREDNISOLONE [Suspect]
     Indication: ILL-DEFINED DISORDER
     Dosage: 40 MG (20 MG, 2 IN 1 D), ORAL
     Route: 048
     Dates: start: 20040731
  6. PANTOPRAZOLE (PANTOPRAZOLE) [Suspect]
     Indication: ILL-DEFINED DISORDER
     Dosage: 20 MG (40 MG, 1 IN 1 D), ORAL
     Route: 048
     Dates: start: 20040731
  7. URAPIDIL (URAPIDIL) [Concomitant]
  8. CLARITHROMYCIN [Concomitant]
  9. ACETAMINOPHEN [Concomitant]
  10. FLECAINIDE ACETATE [Concomitant]
  11. SOTALOL HCL [Concomitant]
  12. LEVOTHYROXINE SODIUM [Concomitant]
  13. CALCITONIN, HUMAN (CALCITONIN, HUMAN) [Concomitant]

REACTIONS (1)
  - HYPONATRAEMIA [None]
